FAERS Safety Report 10289671 (Version 1)
Quarter: 2014Q3

REPORT INFORMATION
  Report Type: Spontaneous
  Country: US (occurrence: None)
  Receive Date: 20140707
  Receipt Date: 20140707
  Transmission Date: 20150326
  Serious: Yes (Hospitalization)
  Sender: FDA-Public Use
  Company Number: UNT-2014-001796

PATIENT
  Age: 43 Year
  Sex: Female
  Weight: 64 kg

DRUGS (6)
  1. NEXIUM [Concomitant]
     Active Substance: ESOMEPRAZOLE MAGNESIUM
  2. SINGULAIR (MONTELUKAST SODIUM) [Concomitant]
  3. COUMADIN [Concomitant]
     Active Substance: WARFARIN SODIUM
  4. NORCO (HYDROCODONE BITARTRATE, PARACETAMOL) [Concomitant]
  5. REMODULIN [Suspect]
     Active Substance: TREPROSTINIL
     Indication: PULMONARY ARTERIAL HYPERTENSION
     Route: 058
     Dates: start: 20131011
  6. ZOFRAN (ONDANSETRON) [Concomitant]

REACTIONS (15)
  - Chest pain [None]
  - Hyperhidrosis [None]
  - Renal failure chronic [None]
  - Nausea [None]
  - Feeling of body temperature change [None]
  - Thrombocytopenia [None]
  - Dizziness [None]
  - Diarrhoea [None]
  - Hypoxia [None]
  - Asthenia [None]
  - Hypothyroidism [None]
  - Normochromic normocytic anaemia [None]
  - Pulmonary hypertension [None]
  - Dyspnoea [None]
  - Sleep apnoea syndrome [None]

NARRATIVE: CASE EVENT DATE: 201405
